FAERS Safety Report 8745703 (Version 2)
Quarter: 2013Q4

REPORT INFORMATION
  Report Type: Report from Study
  Country: JP (occurrence: JP)
  Receive Date: 20120827
  Receipt Date: 20131106
  Transmission Date: 20140711
  Serious: Yes (Other)
  Sender: FDA-Public Use
  Company Number: JP-009507513-1208JPN009355

PATIENT
  Age: 61 Year
  Sex: Female
  Weight: 47 kg

DRUGS (13)
  1. PEGINTRON [Suspect]
     Indication: CHRONIC HEPATITIS C
     Dosage: 1.5 MCG /KG/WEEK
     Route: 058
     Dates: start: 20120413, end: 20120425
  2. PEGINTRON [Suspect]
     Dosage: 1.0 MCG /KG/WEEK
     Route: 058
     Dates: start: 20120426, end: 20120606
  3. PEGINTRON [Suspect]
     Dosage: 1.0 MCG /KG/WEEK
     Route: 058
     Dates: start: 20120626
  4. REBETOL [Suspect]
     Indication: CHRONIC HEPATITIS C
     Dosage: 600 MG, QD
     Route: 048
     Dates: start: 20120413, end: 20120606
  5. REBETOL [Suspect]
     Dosage: 400 MG, QD
     Route: 048
     Dates: start: 20120626
  6. TELAVIC [Suspect]
     Indication: CHRONIC HEPATITIS C
     Dosage: 2250 MG, QD
     Route: 048
     Dates: start: 20120413, end: 20120607
  7. TELAVIC [Suspect]
     Dosage: 1500 MG, QD
     Route: 048
     Dates: start: 20120626, end: 20120724
  8. NAUZELIN [Concomitant]
     Indication: CHRONIC HEPATITIS C
     Dosage: SINGEL USE DURING 10MG/DAY
     Route: 048
     Dates: start: 20120413
  9. NAUZELIN [Concomitant]
     Dosage: SINGLE USE DURING 1T/DAY
  10. RIKKUNSHI-TO [Concomitant]
     Dosage: POR THREE DAY OF ..ENCOMPASSING.. / SINGLE USE
     Route: 048
  11. LORFENAMIN [Concomitant]
     Dosage: SINGLE USE DURING 1T/DAY
     Route: 048
  12. EPADEL [Concomitant]
     Dosage: POR
     Route: 048
  13. L CARTIN [Concomitant]
     Dosage: 3 DF, QD
     Route: 048

REACTIONS (7)
  - Anaemia [Not Recovered/Not Resolved]
  - Platelet count decreased [Not Recovered/Not Resolved]
  - Renal impairment [Not Recovered/Not Resolved]
  - White blood cell count decreased [Not Recovered/Not Resolved]
  - Decreased appetite [Recovering/Resolving]
  - Anaemia [Recovering/Resolving]
  - Platelet count decreased [Recovering/Resolving]
